FAERS Safety Report 22922115 (Version 2)
Quarter: 2024Q3

REPORT INFORMATION
  Report Type: Spontaneous
  Country: US (occurrence: None)
  Receive Date: 20230908
  Receipt Date: 20240906
  Transmission Date: 20241016
  Serious: No
  Sender: DOMPE FARMACEUTICI
  Company Number: US-FARMAPROD-202301-0068

PATIENT
  Age: 30 Year
  Sex: Female

DRUGS (6)
  1. OXERVATE [Suspect]
     Active Substance: CENEGERMIN-BKBJ
     Indication: Neurotrophic keratopathy
     Route: 047
     Dates: start: 20221215, end: 20230210
  2. OXERVATE [Suspect]
     Active Substance: CENEGERMIN-BKBJ
     Route: 047
     Dates: start: 20240228
  3. OXERVATE [Suspect]
     Active Substance: CENEGERMIN-BKBJ
  4. REFRESH OMEGA [Concomitant]
  5. CEQUA FORTE [Concomitant]
  6. HERBALS\HONEY [Concomitant]
     Active Substance: HERBALS\HONEY

REACTIONS (4)
  - Nasopharyngitis [Unknown]
  - Ocular hyperaemia [Unknown]
  - Eyelid irritation [Unknown]
  - Eyelid pain [Unknown]

NARRATIVE: CASE EVENT DATE: 20240304
